FAERS Safety Report 13726112 (Version 1)
Quarter: 2017Q3

REPORT INFORMATION
  Report Type: Spontaneous
  Country: CH (occurrence: CH)
  Receive Date: 20170707
  Receipt Date: 20170707
  Transmission Date: 20171127
  Serious: Yes (Hospitalization)
  Sender: FDA-Public Use
  Company Number: CH-BAYER-2017-130812

PATIENT
  Sex: Female

DRUGS (3)
  1. CIPRALEX [Concomitant]
     Active Substance: ESCITALOPRAM OXALATE
     Dosage: DAILY DOSE 10 MG
     Route: 048
  2. GILENYA [Concomitant]
     Active Substance: FINGOLIMOD HYDROCHLORIDE
     Dosage: DAILY DOSE .5 MG
     Route: 048
     Dates: start: 201601, end: 20170407
  3. BETAFERON [Suspect]
     Active Substance: INTERFERON BETA-1B
     Dosage: DAILY DOSE .5 MG
     Dates: start: 200601, end: 201512

REACTIONS (1)
  - Breast cancer [None]

NARRATIVE: CASE EVENT DATE: 201704
